FAERS Safety Report 9639125 (Version 1)
Quarter: 2013Q4

REPORT INFORMATION
  Report Type: Spontaneous
  Country: US (occurrence: US)
  Receive Date: 20131022
  Receipt Date: 20131022
  Transmission Date: 20140711
  Serious: Yes (Other)
  Sender: FDA-Public Use
  Company Number: US-UCBSA-100398

PATIENT
  Sex: Male

DRUGS (2)
  1. ATORVASTATIN [Suspect]
     Indication: BLOOD CHOLESTEROL INCREASED
     Dosage: 20MG DOSAGE STRENGTH, 1.5 DAILY
  2. ATORVASTATIN(DR REDDY BRAND) [Concomitant]

REACTIONS (2)
  - Hypersensitivity [Unknown]
  - Arthritis [Unknown]
